FAERS Safety Report 21529903 (Version 1)
Quarter: 2022Q4

REPORT INFORMATION
  Report Type: Spontaneous
  Country: US (occurrence: US)
  Receive Date: 20221031
  Receipt Date: 20221031
  Transmission Date: 20230112
  Serious: Yes (Other)
  Sender: FDA-Public Use
  Company Number: US-PFIZER INC-PV202200092242

PATIENT
  Age: 32 Year
  Sex: Female

DRUGS (1)
  1. XELJANZ XR [Suspect]
     Active Substance: TOFACITINIB CITRATE
     Dosage: UNK

REACTIONS (9)
  - Autism spectrum disorder [Unknown]
  - Fibromyalgia [Unknown]
  - Attention deficit hyperactivity disorder [Unknown]
  - Post-traumatic stress disorder [Unknown]
  - Nerve injury [Unknown]
  - Dysstasia [Unknown]
  - Nasopharyngitis [Unknown]
  - Asthma [Unknown]
  - Depression [Unknown]
